FAERS Safety Report 11776483 (Version 1)
Quarter: 2015Q4

REPORT INFORMATION
  Report Type: Spontaneous
  Country: BR (occurrence: BR)
  Receive Date: 20151125
  Receipt Date: 20151125
  Transmission Date: 20160304
  Serious: Yes (Hospitalization)
  Sender: FDA-Public Use
  Company Number: BR-ACCORD-035672

PATIENT
  Age: 64 Year
  Sex: Female
  Weight: 64 kg

DRUGS (5)
  1. CISPLATIN. [Suspect]
     Active Substance: CISPLATIN
     Indication: OESOPHAGEAL CARCINOMA
     Dosage: C1:D1.?ALSO RECEIVED 50 MG
     Route: 042
     Dates: start: 20151013, end: 20151013
  2. IRINOTECAN [Concomitant]
     Active Substance: IRINOTECAN
     Dosage: C1: D1
     Route: 042
  3. DEXAMETHASONE. [Concomitant]
     Active Substance: DEXAMETHASONE
     Indication: CHEMOTHERAPY
     Route: 042
  4. ATROPINE. [Concomitant]
     Active Substance: ATROPINE
     Indication: CHEMOTHERAPY
     Route: 042
  5. ONDANSETRON [Concomitant]
     Active Substance: ONDANSETRON
     Indication: CHEMOTHERAPY
     Route: 042

REACTIONS (4)
  - Oxygen saturation decreased [Recovered/Resolved]
  - Tachycardia [Recovered/Resolved]
  - Hyperaemia [Recovered/Resolved]
  - Off label use [Unknown]

NARRATIVE: CASE EVENT DATE: 20151013
